FAERS Safety Report 7414088-7 (Version None)
Quarter: 2011Q2

REPORT INFORMATION
  Report Type: 
  Country: None (occurrence: None)
  Receive Date: 20110414
  Receipt Date: 20110408
  Transmission Date: 20111010
  Serious: No
  Sender: FDA-Public Use
  Company Number: US-PFIZER INC-2011078414

PATIENT
  Age: 29 Year
  Sex: Male
  Weight: 86.168 kg

DRUGS (2)
  1. PRISTIQ [Suspect]
     Indication: DEPRESSION
     Dosage: 50 MG, 1X/DAY
     Route: 048
     Dates: start: 20091101, end: 20100101
  2. PRISTIQ [Suspect]
     Dosage: 100 MG, 1X/DAY
     Route: 048
     Dates: start: 20100101, end: 20100701

REACTIONS (4)
  - BLOOD TESTOSTERONE DECREASED [None]
  - INSOMNIA [None]
  - DEHYDROEPIANDROSTERONE DECREASED [None]
  - ALOPECIA [None]
